FAERS Safety Report 13551324 (Version 1)
Quarter: 2017Q2

REPORT INFORMATION
  Report Type: Spontaneous
  Country: FR (occurrence: FR)
  Receive Date: 20170516
  Receipt Date: 20170516
  Transmission Date: 20170830
  Serious: Yes (Hospitalization)
  Sender: FDA-Public Use
  Company Number: FR-SA-2017SA087622

PATIENT
  Age: 83 Year
  Sex: Female
  Weight: 77 kg

DRUGS (10)
  1. NOVOMIX [Concomitant]
     Active Substance: INSULIN ASPART
     Indication: HYPOGLYCAEMIA
     Dosage: 30 IU IN THE MORNING, 28 IU IN THE EVENING
     Route: 065
     Dates: end: 20170328
  2. PLAVIX [Suspect]
     Active Substance: CLOPIDOGREL BISULFATE
     Indication: TRANSCATHETER AORTIC VALVE IMPLANTATION
     Route: 048
     Dates: start: 20170201
  3. ATORVASTATIN [Concomitant]
     Active Substance: ATORVASTATIN
     Route: 065
  4. VALSARTAN. [Concomitant]
     Active Substance: VALSARTAN
     Route: 065
  5. KEPPRA [Concomitant]
     Active Substance: LEVETIRACETAM
     Route: 065
  6. TRIMEBUTINE [Concomitant]
     Active Substance: TRIMEBUTINE
     Route: 065
     Dates: end: 20170328
  7. KARDEGIC [Suspect]
     Active Substance: ASPIRIN LYSINE
     Indication: TRANSCATHETER AORTIC VALVE IMPLANTATION
     Route: 048
     Dates: start: 20170129
  8. ESOMEPRAZOLE [Concomitant]
     Active Substance: ESOMEPRAZOLE
     Route: 065
     Dates: end: 20170328
  9. DIFFU K [Concomitant]
     Active Substance: POTASSIUM CHLORIDE
     Indication: HYPOKALAEMIA
     Route: 065
     Dates: end: 20170328
  10. ISOPTINE [Concomitant]
     Active Substance: VERAPAMIL HYDROCHLORIDE
     Route: 065

REACTIONS (7)
  - Mood swings [Recovering/Resolving]
  - Impaired quality of life [Recovering/Resolving]
  - Initial insomnia [Recovering/Resolving]
  - Confusional state [Recovering/Resolving]
  - Disorientation [Recovering/Resolving]
  - Hallucination, visual [Recovering/Resolving]
  - Confusion postoperative [Recovering/Resolving]

NARRATIVE: CASE EVENT DATE: 20170130
